FAERS Safety Report 20524469 (Version 1)
Quarter: 2022Q1

REPORT INFORMATION
  Report Type: Spontaneous
  Country: US (occurrence: US)
  Receive Date: 20220228
  Receipt Date: 20220228
  Transmission Date: 20220423
  Serious: Yes (Death, Other)
  Sender: FDA-Public Use
  Company Number: US-AMGEN-USASP2022032609

PATIENT

DRUGS (3)
  1. FILGRASTIM [Suspect]
     Active Substance: FILGRASTIM
     Indication: Prophylaxis
     Dosage: UNK
     Route: 065
  2. FILGRASTIM [Suspect]
     Active Substance: FILGRASTIM
     Indication: Off label use
  3. FAMCICLOVIR [Concomitant]
     Active Substance: FAMCICLOVIR
     Indication: Prophylaxis
     Dosage: 500 MILLIGRAM, QD (FOR 3 MONTHS)

REACTIONS (8)
  - Adverse event [Fatal]
  - Tubulointerstitial nephritis [Unknown]
  - Varicella zoster virus infection [Unknown]
  - Polyomavirus viraemia [Unknown]
  - Herpes zoster [Recovered/Resolved]
  - Transplant rejection [Unknown]
  - Graft loss [Unknown]
  - Off label use [Unknown]
